FAERS Safety Report 22078000 (Version 1)
Quarter: 2023Q1

REPORT INFORMATION
  Report Type: Spontaneous
  Country: GB (occurrence: None)
  Receive Date: 20230309
  Receipt Date: 20230309
  Transmission Date: 20230418
  Serious: Yes (Disabling, Other)
  Sender: FDA-Public Use
  Company Number: 2023A055651

PATIENT
  Age: 34 Year
  Sex: Female

DRUGS (9)
  1. DAPAGLIFLOZIN [Suspect]
     Active Substance: DAPAGLIFLOZIN
     Dates: end: 20230208
  2. DESOGESTREL [Concomitant]
     Active Substance: DESOGESTREL
  3. DULOXETINE [Concomitant]
     Active Substance: DULOXETINE
  4. NAPROXEN [Concomitant]
     Active Substance: NAPROXEN
  5. OMEPRAZOLE [Concomitant]
     Active Substance: OMEPRAZOLE
  6. PREGABALIN [Concomitant]
     Active Substance: PREGABALIN
  7. QUETIAPINE [Concomitant]
     Active Substance: QUETIAPINE
  8. TOPIRAMATE [Concomitant]
     Active Substance: TOPIRAMATE
  9. TRULICITY [Concomitant]
     Active Substance: DULAGLUTIDE

REACTIONS (1)
  - Candida infection [Recovering/Resolving]
